FAERS Safety Report 10807306 (Version 1)
Quarter: 2015Q1

REPORT INFORMATION
  Report Type: Report from Study
  Country: US (occurrence: US)
  Receive Date: 20150217
  Receipt Date: 20150217
  Transmission Date: 20150721
  Serious: No
  Sender: FDA-Public Use
  Company Number: US-ABBVIE-14K-163-1247219-00

PATIENT
  Age: 34 Year
  Sex: Female

DRUGS (3)
  1. HUMIRA [Suspect]
     Active Substance: ADALIMUMAB
     Dosage: DAY TWO
     Dates: start: 20140531, end: 20140531
  2. HUMIRA [Suspect]
     Active Substance: ADALIMUMAB
     Indication: CROHN^S DISEASE
     Dosage: DAY ONE
     Dates: start: 20140530, end: 20140530
  3. HUMIRA [Suspect]
     Active Substance: ADALIMUMAB

REACTIONS (1)
  - Product label confusion [Recovered/Resolved]

NARRATIVE: CASE EVENT DATE: 20140530
